FAERS Safety Report 25576357 (Version 4)
Quarter: 2025Q4

REPORT INFORMATION
  Report Type: Report from Study
  Country: US (occurrence: US)
  Receive Date: 20250718
  Receipt Date: 20251204
  Transmission Date: 20260118
  Serious: No
  Sender: AVERITAS
  Company Number: US-GRUNENTHAL-2025-109993

PATIENT
  Age: 78 Year
  Sex: Male

DRUGS (6)
  1. QUTENZA [Suspect]
     Active Substance: CAPSAICIN
     Indication: Diabetic neuropathy
     Dosage: UNK UNK, ONCE
     Route: 061
     Dates: start: 20250627, end: 20250627
  2. QUTENZA [Suspect]
     Active Substance: CAPSAICIN
     Dosage: UNK UNK, ONCE
     Route: 061
     Dates: start: 20251017, end: 20251017
  3. FRANKINCENSE [Concomitant]
     Active Substance: FRANKINCENSE
     Indication: Product used for unknown indication
     Dosage: UNK
     Route: 065
  4. MYRRH [Concomitant]
     Active Substance: MYRRH
     Indication: Product used for unknown indication
     Dosage: UNK
     Route: 065
  5. GABAPENTIN [Concomitant]
     Active Substance: GABAPENTIN
     Indication: Pain
     Dosage: 2 DOSAGE FORM
     Route: 065
     Dates: start: 202510
  6. UNSPECIFIED INGREDIENT [Concomitant]
     Active Substance: UNSPECIFIED INGREDIENT
     Indication: Pain
     Dosage: UNK
     Route: 065
     Dates: start: 202510

REACTIONS (4)
  - Burning sensation [Not Recovered/Not Resolved]
  - Pain [Unknown]
  - Burning sensation [Unknown]
  - Pain [Unknown]

NARRATIVE: CASE EVENT DATE: 20250601
